FAERS Safety Report 8834225 (Version 1)
Quarter: 2012Q4

REPORT INFORMATION
  Report Type: Report from Study
  Country: CA (occurrence: CA)
  Receive Date: 20121010
  Receipt Date: 20121010
  Transmission Date: 20130627
  Serious: Yes (Other)
  Sender: FDA-Public Use
  Company Number: CA-ROCHE-1141468

PATIENT
  Sex: Female
  Weight: 65.83 kg

DRUGS (6)
  1. MABTHERA [Suspect]
     Indication: RHEUMATOID ARTHRITIS
     Route: 042
     Dates: start: 20120420
  2. PREDNISONE [Concomitant]
  3. METHOTREXATE [Concomitant]
  4. HYDROCHLOROTHIAZIDE [Concomitant]
  5. SYNTHROID [Concomitant]
  6. FOLIC ACID [Concomitant]

REACTIONS (1)
  - Malignant melanoma [Not Recovered/Not Resolved]
